FAERS Safety Report 4294757-0 (Version None)
Quarter: 2004Q1

REPORT INFORMATION
  Report Type: 
  Country: None (occurrence: None)
  Receive Date: 20040213
  Receipt Date: 20031203
  Transmission Date: 20041129
  Serious: Yes (Disabling)
  Sender: FDA-Public Use
  Company Number: WAES 0312USA00556

PATIENT
  Age: 28 Year
  Sex: Female
  Weight: 69 kg

DRUGS (7)
  1. WELLBUTRIN SR [Concomitant]
  2. ALLEGRA [Concomitant]
  3. FLONASE [Concomitant]
  4. HORMONAL CONTRACEPTIVES (UNSPECIFIED) [Concomitant]
     Route: 048
  5. LORAZEPAM [Concomitant]
     Indication: PHOBIA OF FLYING
  6. LORAZEPAM [Concomitant]
  7. MAXALT [Suspect]
     Indication: MIGRAINE
     Route: 048

REACTIONS (12)
  - ARRHYTHMIA [None]
  - BLOOD PRESSURE DECREASED [None]
  - CHEST PAIN [None]
  - DIZZINESS [None]
  - ELECTROCARDIOGRAM QRS COMPLEX SHORTENED [None]
  - ELECTROCARDIOGRAM ST SEGMENT ABNORMAL [None]
  - ELECTROCARDIOGRAM ST-T SEGMENT ABNORMAL [None]
  - HEART RATE INCREASED [None]
  - PALPITATIONS [None]
  - SINUS TACHYCARDIA [None]
  - SUPRAVENTRICULAR TACHYCARDIA [None]
  - SYNCOPE [None]
